FAERS Safety Report 11489528 (Version 1)
Quarter: 2015Q3

REPORT INFORMATION
  Report Type: Spontaneous
  Country: US (occurrence: US)
  Receive Date: 20150910
  Receipt Date: 20150910
  Transmission Date: 20151125
  Serious: No
  Sender: FDA-Public Use
  Company Number: US-ROCHE-1578869

PATIENT
  Age: 43 Year
  Sex: Female

DRUGS (1)
  1. PEGASYS [Suspect]
     Active Substance: PEGINTERFERON ALFA-2A
     Indication: HEPATITIS C
     Route: 058
     Dates: start: 20150401

REACTIONS (5)
  - Cough [Unknown]
  - Crying [Unknown]
  - Stomatitis [Unknown]
  - Immune system disorder [Unknown]
  - Rash [Not Recovered/Not Resolved]
